FAERS Safety Report 17270261 (Version 2)
Quarter: 2020Q1

REPORT INFORMATION
  Report Type: Report from Study
  Country: US (occurrence: US)
  Receive Date: 20200114
  Receipt Date: 20200226
  Transmission Date: 20200409
  Serious: Yes (Death)
  Sender: FDA-Public Use
  Company Number: US-OTSUKA-2020_000826

PATIENT
  Age: 95 Year
  Sex: Female
  Weight: 47.2 kg

DRUGS (1)
  1. DEXTROMETHORPHAN/QUINIDINE [Suspect]
     Active Substance: DEXTROMETHORPHAN HYDROBROMIDE\QUINIDINE SULFATE
     Indication: AFFECT LABILITY
     Dosage: 1 DF (20/10MG), BID (TWICE A DAY)
     Route: 065
     Dates: start: 20190212, end: 20190424

REACTIONS (1)
  - Death [Fatal]

NARRATIVE: CASE EVENT DATE: 20190511
